FAERS Safety Report 5125103-8 (Version None)
Quarter: 2006Q4

REPORT INFORMATION
  Report Type: 
  Country: None (occurrence: None)
  Receive Date: 20061010
  Receipt Date: 20061010
  Transmission Date: 20070319
  Serious: Yes (Life-Threatening, Hospitalization, Other)
  Sender: FDA-Public Use
  Company Number: None

PATIENT
  Age: 42 Year
  Sex: Female
  Weight: 145.151 kg

DRUGS (1)
  1. NALTREXONE HCL TAB 50 MG MALLINCKRO [Suspect]
     Indication: SELF INJURIOUS BEHAVIOUR
     Dosage: SEE IMAGE
     Route: 048
     Dates: start: 20050901, end: 20060913

REACTIONS (3)
  - DRUG INEFFECTIVE [None]
  - INADEQUATE ANALGESIA [None]
  - PROCEDURAL PAIN [None]
